FAERS Safety Report 10022864 (Version 1)
Quarter: 2014Q1

REPORT INFORMATION
  Report Type: Spontaneous
  Country: US (occurrence: US)
  Receive Date: 20140319
  Receipt Date: 20140319
  Transmission Date: 20141002
  Serious: Yes (Hospitalization)
  Sender: FDA-Public Use
  Company Number: US-BIOMARINAP-US-2014-102750

PATIENT
  Age: 17 Year
  Sex: Female

DRUGS (1)
  1. KUVAN [Suspect]
     Indication: TETRAHYDROBIOPTERIN DEFICIENCY
     Dosage: 400 MG, UNK
     Route: 048

REACTIONS (1)
  - Convulsion [Not Recovered/Not Resolved]
